FAERS Safety Report 7338756-0 (Version None)
Quarter: 2011Q1

REPORT INFORMATION
  Report Type: 
  Country: None (occurrence: None)
  Receive Date: 20110303
  Receipt Date: 20110303
  Transmission Date: 20110831
  Serious: Yes (Hospitalization)
  Sender: FDA-Public Use
  Company Number: None

PATIENT
  Age: 64 Year
  Sex: Female
  Weight: 103.7 kg

DRUGS (3)
  1. BEVACIZUMAB 15MG/KG GENENTECH [Suspect]
     Indication: BREAST CANCER
     Dosage: 1550 MG Q3 WKS IV
     Route: 042
     Dates: start: 20110203
  2. BEVACIZUMAB 15MG/KG GENENTECH [Suspect]
     Indication: BREAST CANCER
     Dosage: 1550 MG Q3 WKS IV
     Route: 042
     Dates: start: 20110224
  3. FEMARA [Concomitant]

REACTIONS (2)
  - DIVERTICULAR PERFORATION [None]
  - FLATULENCE [None]
